FAERS Safety Report 9230644 (Version 1)
Quarter: 2013Q2

REPORT INFORMATION
  Report Type: Spontaneous
  Country: ES (occurrence: ES)
  Receive Date: 20130415
  Receipt Date: 20130415
  Transmission Date: 20140414
  Serious: Yes (Other)
  Sender: FDA-Public Use
  Company Number: ES-PFIZER INC-2013113206

PATIENT
  Age: 39 Year
  Sex: Female

DRUGS (2)
  1. PACLITAXEL [Suspect]
     Indication: BREAST CANCER
     Dosage: 80 MG/M2, UNK (ON DAYS 1, 8 AND 15)
     Route: 042
  2. GEMCITABINE [Concomitant]
     Indication: BREAST CANCER
     Dosage: 800 MG/M2, UNK ((ON DAYS 1, 8 AND 15 FOLLOWED BY A 1-WEEK REST PERIOD.)
     Route: 042

REACTIONS (1)
  - Cystoid macular oedema [Recovered/Resolved]
